FAERS Safety Report 13777669 (Version 2)
Quarter: 2017Q3

REPORT INFORMATION
  Report Type: Spontaneous
  Country: JP (occurrence: JP)
  Receive Date: 20170721
  Receipt Date: 20170801
  Transmission Date: 20171127
  Serious: Yes (Hospitalization)
  Sender: FDA-Public Use
  Company Number: JP-ELI_LILLY_AND_COMPANY-JP201705010783

PATIENT
  Age: 54 Year
  Sex: Male

DRUGS (11)
  1. BAYASPIRIN [Suspect]
     Active Substance: ASPIRIN
     Indication: PRODUCT USED FOR UNKNOWN INDICATION
     Dosage: UNK UNK, UNKNOWN
     Route: 048
  2. MAGNESIUM OXIDE. [Concomitant]
     Active Substance: MAGNESIUM OXIDE
     Indication: CONSTIPATION
     Dosage: .4 G, TID
     Route: 065
     Dates: start: 20170510, end: 20170519
  3. PRASUGREL HYDROCHLORIDE [Suspect]
     Active Substance: PRASUGREL HYDROCHLORIDE
     Indication: PRODUCT USED FOR UNKNOWN INDICATION
     Dosage: 20 MG, SINGLE
     Route: 048
     Dates: start: 20170509, end: 20170509
  4. CARVEDILOL. [Concomitant]
     Active Substance: CARVEDILOL
     Indication: CARDIAC FAILURE
     Dosage: 2.5 MG, DAILY
     Route: 065
     Dates: start: 20170515, end: 20170519
  5. PRASUGREL HYDROCHLORIDE [Suspect]
     Active Substance: PRASUGREL HYDROCHLORIDE
     Dosage: 3.75 MG, DAILY
     Route: 048
     Dates: start: 20170510, end: 20170518
  6. PANTETHINE TEVA [Concomitant]
     Indication: CONSTIPATION
     Dosage: 1 G, TID
     Route: 065
     Dates: end: 20170519
  7. TAKECAB [Concomitant]
     Active Substance: VONOPRAZAN FUMURATE
     Indication: PRODUCT USED FOR UNKNOWN INDICATION
     Dosage: UNK UNK, UNKNOWN
     Route: 048
  8. CRESTOR [Concomitant]
     Active Substance: ROSUVASTATIN CALCIUM
     Dosage: 2.5 MG, DAILY
     Route: 065
     Dates: start: 20170602
  9. TEMOCAPRIL HYDROCHLORIDE [Concomitant]
     Active Substance: TEMOCAPRIL HYDROCHLORIDE
     Indication: CARDIAC FAILURE
     Dosage: 2 MG, DAILY
     Route: 065
     Dates: start: 20170512, end: 20170519
  10. CRESTOR [Concomitant]
     Active Substance: ROSUVASTATIN CALCIUM
     Indication: DYSLIPIDAEMIA
     Dosage: 2.5 MG, DAILY
     Route: 065
     Dates: start: 20170509
  11. XYLOCAINE [Concomitant]
     Active Substance: LIDOCAINE HYDROCHLORIDE
     Indication: LOCAL ANAESTHESIA
     Dosage: UNK
     Route: 065
     Dates: start: 20170509, end: 20170509

REACTIONS (27)
  - Blood alkaline phosphatase increased [Unknown]
  - Red blood cell count decreased [Unknown]
  - Haematocrit decreased [Unknown]
  - Platelet count increased [Recovered/Resolved]
  - Bilirubin conjugated increased [Unknown]
  - Blood creatine phosphokinase increased [Unknown]
  - Haemoglobin decreased [Unknown]
  - Blood sodium decreased [Unknown]
  - Eosinophil percentage decreased [Unknown]
  - C-reactive protein increased [Unknown]
  - Alanine aminotransferase increased [Recovered/Resolved]
  - Blood albumin decreased [Recovered/Resolved]
  - Blood potassium increased [Unknown]
  - Blood urea decreased [Unknown]
  - Lymphocyte percentage decreased [Unknown]
  - Basophil percentage decreased [Unknown]
  - Blood chloride decreased [Unknown]
  - Monocyte percentage decreased [Unknown]
  - Blood creatinine decreased [Unknown]
  - Blood glucose increased [Unknown]
  - Intervertebral discitis [Recovered/Resolved]
  - Protein total decreased [Unknown]
  - Blood lactate dehydrogenase increased [Unknown]
  - Aspartate aminotransferase increased [Recovered/Resolved]
  - Gamma-glutamyltransferase increased [Recovered/Resolved]
  - White blood cell count increased [Recovered/Resolved]
  - Blood creatine phosphokinase decreased [Unknown]

NARRATIVE: CASE EVENT DATE: 20170514
